FAERS Safety Report 5946784-2 (Version None)
Quarter: 2008Q4

REPORT INFORMATION
  Report Type: 
  Country: None (occurrence: None)
  Receive Date: 20081110
  Receipt Date: 20081104
  Transmission Date: 20090506
  Serious: Yes (Life-Threatening, Hospitalization)
  Sender: FDA-Public Use
  Company Number: US-MERCK-0811USA00532

PATIENT
  Age: 75 Year
  Sex: Male

DRUGS (3)
  1. JANUVIA [Suspect]
     Indication: DIABETES MELLITUS
     Route: 048
  2. CORTICOSTEROIDS (UNSPECIFIED) [Concomitant]
     Indication: IMMUNE SYSTEM DISORDER
     Route: 065
  3. CORTICOSTEROIDS (UNSPECIFIED) [Concomitant]
     Indication: SKIN DISORDER
     Route: 065

REACTIONS (1)
  - IDIOPATHIC THROMBOCYTOPENIC PURPURA [None]
